FAERS Safety Report 11059924 (Version 2)
Quarter: 2016Q2

REPORT INFORMATION
  Report Type: Spontaneous
  Country: FR (occurrence: FR)
  Receive Date: 20150423
  Receipt Date: 20160407
  Transmission Date: 20160815
  Serious: Yes (Hospitalization)
  Sender: FDA-Public Use
  Company Number: FR-PFIZER INC-2015132158

PATIENT
  Age: 33 Year
  Sex: Male

DRUGS (3)
  1. GUTRON [Suspect]
     Active Substance: MIDODRINE
     Dosage: 2.5 MG, 3X/DAY
  2. LYRICA [Suspect]
     Active Substance: PREGABALIN
     Dosage: 100 MG, 2X/DAY
  3. CERIS [Suspect]
     Active Substance: TROSPIUM CHLORIDE
     Dosage: 20 MG, 2X/DAY

REACTIONS (3)
  - Leukopenia [Unknown]
  - Anaemia macrocytic [Unknown]
  - Thrombocytopenia [Unknown]

NARRATIVE: CASE EVENT DATE: 2014
